FAERS Safety Report 5427488-1 (Version None)
Quarter: 2007Q3

REPORT INFORMATION
  Report Type: 
  Country: None (occurrence: None)
  Receive Date: 20070828
  Receipt Date: 20070817
  Transmission Date: 20080115
  Serious: Yes (Other)
  Sender: FDA-Public Use
  Company Number: US-GENENTECH-246351

PATIENT

DRUGS (2)
  1. BEVACIZUMAB [Suspect]
     Indication: MULTIPLE MYELOMA
  2. THALIDOMIDE [Concomitant]
     Indication: MULTIPLE MYELOMA

REACTIONS (1)
  - PULMONARY HYPERTENSION [None]
